FAERS Safety Report 6210292-4 (Version None)
Quarter: 2009Q2

REPORT INFORMATION
  Report Type: 
  Country: None (occurrence: None)
  Receive Date: 20090529
  Receipt Date: 20090529
  Transmission Date: 20091009
  Serious: Yes (Hospitalization)
  Sender: FDA-Public Use
  Company Number: None

PATIENT
  Age: 40 Year
  Sex: Female
  Weight: 74.8435 kg

DRUGS (3)
  1. ESTRADERM [Suspect]
     Indication: ENDOMETRIOSIS
     Dosage: 1 DAILY TRANSDERMAL 12 YEARS --UNTIL APRIL '07
     Route: 062
  2. ESTRADERM [Suspect]
     Indication: HYSTERECTOMY
     Dosage: 1 DAILY TRANSDERMAL 12 YEARS --UNTIL APRIL '07
     Route: 062
  3. IMITREX [Suspect]
     Indication: MIGRAINE
     Dosage: 1-2 DAILY AS NEEDED PO 11 YEARS--CURRENT
     Route: 048

REACTIONS (1)
  - COLITIS ISCHAEMIC [None]
